FAERS Safety Report 17815783 (Version 2)
Quarter: 2020Q3

REPORT INFORMATION
  Report Type: Spontaneous
  Country: US (occurrence: US)
  Receive Date: 20200522
  Receipt Date: 20200827
  Transmission Date: 20201102
  Serious: Yes (Hospitalization, Other)
  Sender: FDA-Public Use
  Company Number: US-REGENERON PHARMACEUTICALS, INC.-2020-38477

PATIENT

DRUGS (4)
  1. LIBTAYO [Suspect]
     Active Substance: CEMIPLIMAB-RWLC
     Indication: METASTATIC SQUAMOUS CELL CARCINOMA
     Dosage: 350 MG
     Route: 042
  2. LIBTAYO [Suspect]
     Active Substance: CEMIPLIMAB-RWLC
     Dosage: SECOND DOSE
     Route: 042
  3. LIBTAYO [Suspect]
     Active Substance: CEMIPLIMAB-RWLC
     Dosage: THIRD DOSE
     Route: 042
  4. LIBTAYO [Suspect]
     Active Substance: CEMIPLIMAB-RWLC
     Dosage: UNK
     Route: 042

REACTIONS (11)
  - Anuria [Unknown]
  - Fluid overload [Unknown]
  - Blood creatinine increased [Recovered/Resolved]
  - Blood loss anaemia [Unknown]
  - Tubulointerstitial nephritis [Unknown]
  - Blood creatinine increased [Unknown]
  - Renal vasculitis [Unknown]
  - Gastrointestinal haemorrhage [Unknown]
  - Occult blood positive [Unknown]
  - Immune-mediated renal disorder [Unknown]
  - Acute kidney injury [Unknown]
